FAERS Safety Report 15456300 (Version 3)
Quarter: 2019Q1

REPORT INFORMATION
  Report Type: Spontaneous
  Country: US (occurrence: US)
  Receive Date: 20181002
  Receipt Date: 20190228
  Transmission Date: 20190417
  Serious: No
  Sender: FDA-Public Use
  Company Number: US-BAUSCH-BL-2018-025388

PATIENT
  Age: 57 Year
  Sex: Male
  Weight: 81.72 kg

DRUGS (2)
  1. JUBLIA [Suspect]
     Active Substance: EFINACONAZOLE
     Indication: OFF LABEL USE
     Route: 065
  2. JUBLIA [Suspect]
     Active Substance: EFINACONAZOLE
     Indication: FUNGAL INFECTION
     Dosage: APPROXIMATELY 6 TO 8 MONTHS AGO
     Route: 065
     Dates: start: 2018

REACTIONS (5)
  - Device defective [Unknown]
  - Off label use [Unknown]
  - Skin irritation [Recovered/Resolved]
  - Overdose [Unknown]
  - Erythema [Recovered/Resolved]

NARRATIVE: CASE EVENT DATE: 2018
